FAERS Safety Report 18579162 (Version 1)
Quarter: 2020Q4

REPORT INFORMATION
  Report Type: Spontaneous
  Country: FR (occurrence: FR)
  Receive Date: 20201204
  Receipt Date: 20201204
  Transmission Date: 20210114
  Serious: Yes (Hospitalization)
  Sender: FDA-Public Use
  Company Number: NVSC2020FR321210

PATIENT
  Age: 65 Year
  Sex: Female

DRUGS (5)
  1. REVOLADE [Suspect]
     Active Substance: ELTROMBOPAG
     Indication: IMMUNE THROMBOCYTOPENIA
     Dosage: 50 MG,QD
     Route: 048
     Dates: start: 2020
  2. ELIQUIS [Concomitant]
     Active Substance: APIXABAN
     Indication: PULMONARY EMBOLISM
     Dosage: 2.5 MG,QD
     Route: 048
     Dates: start: 201910
  3. PERINDOPRIL [Concomitant]
     Active Substance: PERINDOPRIL
     Indication: HYPERTENSION
     Dosage: 4 MG,QD
     Route: 048
  4. VIMPAT [Concomitant]
     Active Substance: LACOSAMIDE
     Indication: EPILEPSY
     Dosage: 200 MG,QD
     Route: 048
     Dates: start: 201910
  5. GABAPENTINE [Concomitant]
     Active Substance: GABAPENTIN
     Indication: EPILEPSY
     Dosage: 600 MG,QD
     Route: 048
     Dates: start: 201910

REACTIONS (2)
  - Peripheral ischaemia [Not Recovered/Not Resolved]
  - Extremity necrosis [Not Recovered/Not Resolved]

NARRATIVE: CASE EVENT DATE: 202010
